FAERS Safety Report 6662448-4 (Version None)
Quarter: 2010Q1

REPORT INFORMATION
  Report Type: 
  Country: None (occurrence: None)
  Receive Date: 20100331
  Receipt Date: 20100322
  Transmission Date: 20100710
  Serious: Yes (Hospitalization, Other)
  Sender: FDA-Public Use
  Company Number: DE-WATSON-2010-03812

PATIENT
  Age: 14 Year
  Sex: Female

DRUGS (2)
  1. DEXAMETHASONE [Suspect]
     Indication: ACUTE LYMPHOCYTIC LEUKAEMIA
     Dosage: 10MG/MM/D
     Dates: start: 20061201
  2. ALL BFM 2000 PROTOCOL [Suspect]
     Indication: ACUTE LYMPHOCYTIC LEUKAEMIA
     Dosage: UNK

REACTIONS (12)
  - ASPERGILLOSIS [None]
  - CHOLESTASIS [None]
  - DRUG INTERACTION [None]
  - FEBRILE NEUTROPENIA [None]
  - LIVER DISORDER [None]
  - LUNG INFILTRATION [None]
  - MUCOSAL INFLAMMATION [None]
  - MYOPATHY [None]
  - NEUROPATHY PERIPHERAL [None]
  - PNEUMONIA [None]
  - RENAL ABSCESS [None]
  - SEPTIC SHOCK [None]
